FAERS Safety Report 9974751 (Version 1)
Quarter: 2014Q1

REPORT INFORMATION
  Report Type: Report from Study
  Country: US (occurrence: US)
  Receive Date: 20140306
  Receipt Date: 20140306
  Transmission Date: 20141002
  Serious: No
  Sender: FDA-Public Use
  Company Number: US-ABBVIE-13P-163-1156742-00

PATIENT
  Age: 52 Year
  Sex: Male
  Weight: 76.73 kg

DRUGS (4)
  1. HUMIRA [Suspect]
     Indication: RHEUMATOID ARTHRITIS
     Dosage: 3 DOSES SO FAR
     Dates: start: 201309
  2. VENTOLIN [Concomitant]
     Indication: ASTHMA
  3. CATAPRES [Concomitant]
     Indication: HYPERTENSION
  4. METHADONE [Concomitant]
     Indication: DRUG DEPENDENCE
     Dosage: MAINTENANCE DOSE
     Dates: start: 201304

REACTIONS (3)
  - Arthritis [Not Recovered/Not Resolved]
  - Headache [Not Recovered/Not Resolved]
  - Arthralgia [Not Recovered/Not Resolved]
